FAERS Safety Report 25241459 (Version 1)
Quarter: 2025Q2

REPORT INFORMATION
  Report Type: Report from Study
  Country: US (occurrence: US)
  Receive Date: 20250425
  Receipt Date: 20250425
  Transmission Date: 20250717
  Serious: Yes (Hospitalization, Other)
  Sender: ABBVIE
  Company Number: US-ABBVIE-6201585

PATIENT
  Age: 82 Year
  Sex: Female
  Weight: 65 kg

DRUGS (2)
  1. SKYRIZI [Suspect]
     Active Substance: RISANKIZUMAB-RZAA
     Indication: Psoriatic arthropathy
     Dosage: FORM STRENGTH: 150 MILLIGRAM
     Route: 058
     Dates: start: 2022, end: 20241130
  2. OTEZLA [Concomitant]
     Active Substance: APREMILAST
     Indication: Arthritis

REACTIONS (11)
  - Rhinovirus infection [Recovered/Resolved]
  - Viral upper respiratory tract infection [Recovered/Resolved]
  - Norovirus infection [Recovered/Resolved]
  - Meniscus injury [Recovering/Resolving]
  - Viral sepsis [Recovered/Resolved]
  - Wheezing [Recovering/Resolving]
  - Dyspnoea [Recovering/Resolving]
  - Cough [Recovering/Resolving]
  - Muscular weakness [Recovering/Resolving]
  - Exostosis [Unknown]
  - Arthralgia [Not Recovered/Not Resolved]

NARRATIVE: CASE EVENT DATE: 20241001
